FAERS Safety Report 6601179-3 (Version None)
Quarter: 2010Q1

REPORT INFORMATION
  Report Type: 
  Country: None (occurrence: None)
  Receive Date: 20100225
  Receipt Date: 20100218
  Transmission Date: 20100710
  Serious: Yes (Other)
  Sender: FDA-Public Use
  Company Number: US-JNJFOC-20100110724

PATIENT
  Sex: Female
  Weight: 88.45 kg

DRUGS (3)
  1. REMICADE [Suspect]
     Indication: PSORIASIS
     Route: 042
  2. MULTI-VITAMINS [Concomitant]
     Indication: NUTRITIONAL SUPPORT
  3. HYPERTENSION MEDICATION [Concomitant]
     Indication: HYPERTENSION

REACTIONS (2)
  - PSORIASIS [None]
  - WEIGHT INCREASED [None]
